FAERS Safety Report 5240577-X (Version None)
Quarter: 2007Q1

REPORT INFORMATION
  Report Type: 
  Country: None (occurrence: None)
  Receive Date: 20070219
  Receipt Date: 20070208
  Transmission Date: 20070707
  Serious: Yes (Death)
  Sender: FDA-Public Use
  Company Number: GBWYE602109FEB07

PATIENT
  Age: 62 Year
  Sex: Female

DRUGS (2)
  1. ENBREL [Suspect]
     Indication: RHEUMATOID ARTHRITIS
     Dosage: 25MG, FREQUENCY UNKNOWN
     Dates: start: 20040301, end: 20050901
  2. ENBREL [Suspect]
     Dosage: 50MG, FREQUENCY UNKNOWN
     Dates: start: 20050901

REACTIONS (2)
  - DRUG EFFECT DECREASED [None]
  - SUBARACHNOID HAEMORRHAGE [None]
